FAERS Safety Report 20734776 (Version 3)
Quarter: 2022Q2

REPORT INFORMATION
  Report Type: Report from Study
  Country: BR (occurrence: BR)
  Receive Date: 20220421
  Receipt Date: 20220505
  Transmission Date: 20220721
  Serious: Yes (Death)
  Sender: FDA-Public Use
  Company Number: BR-NOVARTISPH-NVSC2022BR092301

PATIENT
  Sex: Male
  Weight: 72 kg

DRUGS (2)
  1. DIOVAN [Suspect]
     Active Substance: VALSARTAN
     Indication: Hypertension
     Dosage: 1 DOSAGE FORM, QD (STRENGTH :320/5)
     Route: 048
     Dates: start: 2006, end: 20220323
  2. DIOVAN [Suspect]
     Active Substance: VALSARTAN
     Indication: Arrhythmia

REACTIONS (4)
  - Acute myocardial infarction [Fatal]
  - Cardiac disorder [Fatal]
  - Cardiomegaly [Fatal]
  - Product use in unapproved indication [Unknown]
